FAERS Safety Report 5081207-X (Version None)
Quarter: 2006Q3

REPORT INFORMATION
  Report Type: 
  Country: None (occurrence: None)
  Receive Date: 20060810
  Receipt Date: 20060804
  Transmission Date: 20061208
  Serious: Yes (Other)
  Sender: FDA-Public Use
  Company Number: 8016607

PATIENT
  Age: 5 Month
  Sex: Male
  Weight: 5.85 kg

DRUGS (3)
  1. KEPPRA [Suspect]
     Indication: INFANTILE SPASMS
     Dosage: 450 MG 3/D PO
     Route: 048
     Dates: start: 20051201, end: 20060130
  2. KEPPRA [Suspect]
     Indication: INFANTILE SPASMS
     Dosage: 100 MG 3/D PO
     Route: 048
     Dates: start: 20060201, end: 20060301
  3. FELBATOL [Suspect]
     Dosage: 85 MG 2/D PO
     Route: 048

REACTIONS (4)
  - ALOPECIA [None]
  - DRUG DISPENSING ERROR [None]
  - DRUG INEFFECTIVE [None]
  - INCORRECT DOSE ADMINISTERED [None]
